FAERS Safety Report 10021274 (Version 1)
Quarter: 2014Q1

REPORT INFORMATION
  Report Type: Spontaneous
  Country: IN (occurrence: None)
  Receive Date: 20140313
  Receipt Date: 20140313
  Transmission Date: 20141002
  Serious: Yes (Hospitalization, Other)
  Sender: FDA-Public Use
  Company Number: 2014/014

PATIENT
  Age: 13 Year
  Sex: Female

DRUGS (3)
  1. LEVOFLOXACIN (NO PREF. NAME) 500 MG [Suspect]
     Indication: BRONCHITIS
     Route: 048
  2. ANTIPYRETICS [Concomitant]
  3. ANTITUSSIVES [Concomitant]

REACTIONS (8)
  - Delirium [None]
  - Dizziness [None]
  - Vomiting [None]
  - Tremor [None]
  - Confusional state [None]
  - Disorientation [None]
  - Somnolence [None]
  - Neurotoxicity [None]
